FAERS Safety Report 9519677 (Version 1)
Quarter: 2013Q3

REPORT INFORMATION
  Report Type: Spontaneous
  Country: US (occurrence: US)
  Receive Date: 20130912
  Receipt Date: 20130912
  Transmission Date: 20140515
  Serious: Yes (Other)
  Sender: FDA-Public Use
  Company Number: US-TEVA-431837USA

PATIENT
  Sex: Female

DRUGS (1)
  1. CLOPIDOGREL [Suspect]
     Indication: CARDIOVASCULAR EVENT PROPHYLAXIS
     Dosage: 75 MILLIGRAM DAILY;
     Route: 048

REACTIONS (4)
  - Thrombosis [Unknown]
  - Arterial stenosis [Unknown]
  - Macular oedema [Not Recovered/Not Resolved]
  - Vitreous floaters [Unknown]
